FAERS Safety Report 10235552 (Version 1)
Quarter: 2014Q2

REPORT INFORMATION
  Report Type: Spontaneous
  Country: CA (occurrence: CA)
  Receive Date: 20140613
  Receipt Date: 20140613
  Transmission Date: 20141212
  Serious: Yes (Life-Threatening)
  Sender: FDA-Public Use
  Company Number: CA-B.I. PHARMACEUTICALS,INC./RIDGEFIELD-2014-BI-26499CN

PATIENT
  Age: 82 Year
  Sex: Female

DRUGS (7)
  1. MICARDIS [Suspect]
     Indication: PRODUCT USED FOR UNKNOWN INDICATION
     Dosage: 40 MG
     Route: 048
  2. ALENDRONATE [Concomitant]
     Route: 065
  3. CYANOCOBALAMIN [Concomitant]
     Route: 065
  4. FLUTICASONE [Concomitant]
     Route: 065
  5. SALBUTAMOL [Concomitant]
     Route: 065
  6. SPIRIVA [Concomitant]
     Route: 065
  7. TYLENOL W CODEINE NO3 [Concomitant]
     Route: 065

REACTIONS (3)
  - Loss of consciousness [Recovered/Resolved]
  - Speech disorder [Recovered/Resolved]
  - Swollen tongue [Recovered/Resolved]
